FAERS Safety Report 7782721-6 (Version None)
Quarter: 2011Q3

REPORT INFORMATION
  Report Type: 
  Country: None (occurrence: None)
  Receive Date: 20110928
  Receipt Date: 20110922
  Transmission Date: 20111222
  Serious: Yes (Hospitalization)
  Sender: FDA-Public Use
  Company Number: FR-PFIZER INC-2011225123

PATIENT
  Age: 40 Year
  Sex: Male

DRUGS (10)
  1. NEULEPTIL [Concomitant]
  2. FORLAX [Concomitant]
  3. DEPAKENE [Suspect]
     Indication: EPILEPSY
     Dosage: 0.5 DF, 2X/DAY
     Route: 048
  4. GAVISCON [Concomitant]
  5. NOZINAN [Concomitant]
  6. PIASCLEDINE [Concomitant]
  7. EFFEXOR XR [Suspect]
     Indication: DEPRESSION
     Dosage: 2 DF, 1X/DAY
     Route: 048
     Dates: start: 20110901, end: 20110908
  8. NEXIUM [Suspect]
     Indication: GASTRIC ULCER
     Dosage: 1 DF, 1X/DAY
     Route: 048
  9. TEGRETOL [Suspect]
     Indication: EPILEPSY
     Dosage: 1 DF, 1X/DAY
     Route: 048
  10. DOMPERIDONE [Concomitant]

REACTIONS (2)
  - HYPONATRAEMIA [None]
  - HYPERAMMONAEMIA [None]
